FAERS Safety Report 10454719 (Version 2)
Quarter: 2014Q3

REPORT INFORMATION
  Report Type: Report from Study
  Country: CA (occurrence: CA)
  Receive Date: 20140915
  Receipt Date: 20140915
  Transmission Date: 20150326
  Serious: Yes (Hospitalization, Other)
  Sender: FDA-Public Use
  Company Number: CA-ABBVIE-14P-028-1221691-00

PATIENT
  Sex: Male
  Weight: 73.55 kg

DRUGS (1)
  1. LUPRON DEPOT [Suspect]
     Active Substance: LEUPROLIDE ACETATE
     Indication: PROSTATE CANCER
     Dosage: LATEST INJECTION: 12-DEC-2013
     Dates: start: 20111223

REACTIONS (4)
  - Delirium [Unknown]
  - Prostate cancer metastatic [Not Recovered/Not Resolved]
  - Metastatic pain [Not Recovered/Not Resolved]
  - Mobility decreased [Not Recovered/Not Resolved]
